FAERS Safety Report 4819421-8 (Version None)
Quarter: 2005Q4

REPORT INFORMATION
  Report Type: 
  Country: None (occurrence: None)
  Receive Date: 20051103
  Receipt Date: 20051026
  Transmission Date: 20060501
  Serious: Yes (Hospitalization, Other)
  Sender: FDA-Public Use
  Company Number: PHBS2005JP15774

PATIENT
  Age: 50 Year
  Sex: Male

DRUGS (4)
  1. PREDNISOLONE [Concomitant]
     Indication: NEPHROTIC SYNDROME
  2. MIZORIBINE [Concomitant]
     Route: 048
  3. NEORAL [Suspect]
     Indication: NEPHROTIC SYNDROME
     Dosage: UNK, UNK
     Route: 048
  4. NEORAL [Suspect]
     Route: 048

REACTIONS (3)
  - JC VIRUS INFECTION [None]
  - PROGRESSIVE MULTIFOCAL LEUKOENCEPHALOPATHY [None]
  - RENAL DISORDER [None]
